FAERS Safety Report 24364708 (Version 2)
Quarter: 2024Q4

REPORT INFORMATION
  Report Type: Spontaneous
  Country: EG (occurrence: EG)
  Receive Date: 20240926
  Receipt Date: 20241008
  Transmission Date: 20250115
  Serious: Yes (Hospitalization, Other)
  Sender: NOVO NORDISK
  Company Number: EG-NOVOPROD-1285632

PATIENT
  Age: 957 Month
  Sex: Female
  Weight: 65 kg

DRUGS (5)
  1. INSULIN HUMAN [Suspect]
     Active Substance: INSULIN HUMAN
     Indication: Type 1 diabetes mellitus
     Dosage: 10U ,15U OR 20U (DEPENDS ON THE BGL)
     Route: 058
  2. FAMOTAK [Concomitant]
     Indication: Prophylaxis
     Dosage: 1 TAB. OF 20 MG OR 2 TAB. OF 10 MG ON EMPTY STOMACH
  3. DIETARY SUPPLEMENT\HERBALS\MILK THISTLE [Concomitant]
     Active Substance: MILK THISTLE
     Indication: Hepatic steatosis
     Dosage: UNK
  4. NITROTARD [Concomitant]
     Indication: Hypertension
     Dosage: 1 TAB. ON EMPTY STOMACH
  5. LEVOTHYROXINE [Concomitant]
     Active Substance: LEVOTHYROXINE
     Indication: Thyroid disorder
     Dosage: 1 TAB. ON EMPTY STOMACH

REACTIONS (8)
  - Cataract [Recovered/Resolved]
  - Cataract [Not Recovered/Not Resolved]
  - Hand fracture [Unknown]
  - Mitral valve prolapse [Unknown]
  - Hyperglycaemia [Recovered/Resolved]
  - Hypoglycaemia [Recovering/Resolving]
  - Expired product administered [Unknown]
  - Inappropriate schedule of product administration [Unknown]

NARRATIVE: CASE EVENT DATE: 20240601
